FAERS Safety Report 6197707-5 (Version None)
Quarter: 2009Q2

REPORT INFORMATION
  Report Type: 
  Country: None (occurrence: None)
  Receive Date: 20090521
  Receipt Date: 20090521
  Transmission Date: 20091009
  Serious: Yes (Hospitalization, Other)
  Sender: FDA-Public Use
  Company Number: US-PFIZER INC-2009153542

PATIENT
  Sex: Female
  Weight: 44.444 kg

DRUGS (5)
  1. CHANTIX [Suspect]
     Indication: SMOKING CESSATION THERAPY
     Dosage: UNK
     Route: 048
     Dates: start: 20080101, end: 20080601
  2. KLONOPIN [Concomitant]
     Dosage: UNK
  3. PAXIL [Concomitant]
     Dosage: UNK
  4. ZOLOFT [Concomitant]
     Dosage: UNK
  5. ZOCOR [Concomitant]
     Dosage: UNK

REACTIONS (4)
  - CONVULSION [None]
  - DEPRESSION [None]
  - SUICIDAL BEHAVIOUR [None]
  - WEIGHT DECREASED [None]
